FAERS Safety Report 18184682 (Version 8)
Quarter: 2020Q3

REPORT INFORMATION
  Report Type: Report from Study
  Country: MX (occurrence: MX)
  Receive Date: 20200824
  Receipt Date: 20200930
  Transmission Date: 20201103
  Serious: Yes (Death, Life-Threatening)
  Sender: FDA-Public Use
  Company Number: MX-ROCHE-2659982

PATIENT
  Age: 65 Year
  Sex: Male
  Weight: 71 kg

DRUGS (29)
  1. MIDAZOLAM. [Concomitant]
     Active Substance: MIDAZOLAM
     Indication: COVID-19 PNEUMONIA
     Dates: start: 20200714, end: 20200814
  2. VECURONIUM [Concomitant]
     Active Substance: VECURONIUM BROMIDE
     Dates: start: 20200813, end: 20200813
  3. MEROPENEM. [Concomitant]
     Active Substance: MEROPENEM
     Indication: COVID-19 PNEUMONIA
     Dates: start: 20200714, end: 20200814
  4. BUPRENORPHINE. [Concomitant]
     Active Substance: BUPRENORPHINE
     Indication: COVID-19 PNEUMONIA
     Dates: start: 20200714, end: 20200814
  5. PARACETAMOL [Concomitant]
     Active Substance: ACETAMINOPHEN
     Dates: start: 20200813, end: 20200813
  6. AMIODARONE [Concomitant]
     Active Substance: AMIODARONE
     Indication: BRADYCARDIA
     Dosage: 1 AMPULE
     Dates: start: 20200813, end: 20200813
  7. OMEPRAZOLE. [Concomitant]
     Active Substance: OMEPRAZOLE
     Dates: start: 20200813
  8. PARACETAMOL [Concomitant]
     Active Substance: ACETAMINOPHEN
     Indication: COVID-19 PNEUMONIA
     Dates: start: 20200714, end: 20200814
  9. VECURONIUM [Concomitant]
     Active Substance: VECURONIUM BROMIDE
     Indication: COVID-19 PNEUMONIA
     Dates: start: 20200714, end: 20200814
  10. ROCURONIO [Concomitant]
     Active Substance: ROCURONIUM BROMIDE
     Dates: start: 20200813, end: 20200813
  11. DEXAMETHASONE. [Concomitant]
     Active Substance: DEXAMETHASONE
     Indication: COVID-19 PNEUMONIA
     Dates: start: 20200714, end: 20200814
  12. SODIUM CHLORIDE. [Concomitant]
     Active Substance: SODIUM CHLORIDE
     Indication: COVID-19 PNEUMONIA
     Dates: start: 20200714, end: 20200814
  13. CEFTRIAXONE. [Concomitant]
     Active Substance: CEFTRIAXONE
     Dates: start: 20200813
  14. PROPOFOL. [Concomitant]
     Active Substance: PROPOFOL
     Dates: start: 20200813, end: 20200813
  15. ONDANSETRON [Concomitant]
     Active Substance: ONDANSETRON
     Dates: start: 20200813, end: 20200813
  16. TOCILIZUMAB. [Suspect]
     Active Substance: TOCILIZUMAB
     Indication: COVID-19 PNEUMONIA
     Dosage: 100 ML ONCE
     Route: 042
     Dates: start: 20200718, end: 20200718
  17. ENOXAPARIN [Concomitant]
     Active Substance: ENOXAPARIN
     Indication: COVID-19 PNEUMONIA
     Dates: start: 20200714, end: 20200814
  18. AMIDARONE [Concomitant]
     Active Substance: AMIODARONE
  19. KETOROLAC [Concomitant]
     Active Substance: KETOROLAC TROMETHAMINE
     Dates: start: 20200813, end: 20200813
  20. ATROPINE. [Concomitant]
     Active Substance: ATROPINE
     Indication: BRADYCARDIA
     Dosage: 1 AMPULE
     Dates: start: 20200813, end: 20200813
  21. IMIPENEM [Concomitant]
     Active Substance: IMIPENEM
     Dosage: 1 AMPULE
     Dates: start: 20200813, end: 20200813
  22. CILASTATIN [Concomitant]
     Active Substance: CILASTATIN
     Indication: COVID-19 PNEUMONIA
     Dates: start: 20200714, end: 20200814
  23. HYDROCORTISONE. [Concomitant]
     Active Substance: HYDROCORTISONE
     Indication: COVID-19 PNEUMONIA
     Dates: start: 20200714, end: 20200814
  24. METRONIDAZOLE. [Concomitant]
     Active Substance: METRONIDAZOLE
     Dates: start: 20200813
  25. ERTAPENEM. [Concomitant]
     Active Substance: ERTAPENEM SODIUM
     Dates: start: 20200813, end: 20200813
  26. FENTANIL [Concomitant]
     Active Substance: FENTANYL
     Dates: start: 20200813, end: 20200813
  27. AMIODARONE [Concomitant]
     Active Substance: AMIODARONE
     Indication: COVID-19 PNEUMONIA
     Dates: start: 20200714, end: 20200814
  28. NOREPINEPHRINE. [Concomitant]
     Active Substance: NOREPINEPHRINE
     Indication: COVID-19 PNEUMONIA
     Dates: start: 20200714, end: 20200814
  29. IMIPENEM [Concomitant]
     Active Substance: IMIPENEM
     Indication: COVID-19 PNEUMONIA
     Dates: start: 20200714, end: 20200814

REACTIONS (3)
  - Septic shock [Fatal]
  - Gallbladder rupture [Recovering/Resolving]
  - Cholecystitis infective [Not Recovered/Not Resolved]

NARRATIVE: CASE EVENT DATE: 20200813
